FAERS Safety Report 16054392 (Version 2)
Quarter: 2019Q1

REPORT INFORMATION
  Report Type: Spontaneous
  Country: CA (occurrence: CA)
  Receive Date: 20190309
  Receipt Date: 20190318
  Transmission Date: 20190418
  Serious: Yes (Other)
  Sender: FDA-Public Use
  Company Number: CA-CELLTRION INC.-2017CA017541

PATIENT

DRUGS (12)
  1. INFLECTRA [Suspect]
     Active Substance: INFLIXIMAB-DYYB
     Dosage: 500 MG, CYCLIC (EVERY 6 WEEKS)
     Route: 042
     Dates: start: 20181206
  2. LYRICA [Concomitant]
     Active Substance: PREGABALIN
     Dosage: UNK
     Route: 065
     Dates: start: 2007
  3. INFLECTRA [Suspect]
     Active Substance: INFLIXIMAB-DYYB
     Dosage: 500 MG, CYCLIC (EVERY 8 WEEKS)
     Route: 042
     Dates: start: 20170816
  4. INFLECTRA [Suspect]
     Active Substance: INFLIXIMAB-DYYB
     Dosage: 500 MG, CYCLIC (EVERY 6 WEEKS)
     Route: 042
     Dates: start: 20190221
  5. NORVASC [Concomitant]
     Active Substance: AMLODIPINE BESYLATE
     Dosage: UNK
     Route: 065
     Dates: start: 2013
  6. INFLECTRA [Suspect]
     Active Substance: INFLIXIMAB-DYYB
     Dosage: 500 MG, CYCLIC (EVERY 8 WEEKS)
     Route: 042
     Dates: start: 20171012
  7. INFLECTRA [Suspect]
     Active Substance: INFLIXIMAB-DYYB
     Indication: ANKYLOSING SPONDYLITIS
     Dosage: 400 MG, CYCLIC (EVERY 0, 2, 6 WEEKS, THEN EVERY 8  WEEKS
     Route: 042
     Dates: start: 20170124, end: 20170619
  8. INFLECTRA [Suspect]
     Active Substance: INFLIXIMAB-DYYB
     Dosage: 500 MG, CYCLIC (EVERY 8 WEEKS)
     Route: 042
     Dates: start: 20180326
  9. INFLECTRA [Suspect]
     Active Substance: INFLIXIMAB-DYYB
     Dosage: UNK
     Route: 065
     Dates: start: 20181018, end: 20181018
  10. INDOMETHACIN /00003801/ [Concomitant]
     Active Substance: INDOMETHACIN
     Dosage: UNK
     Route: 048
     Dates: start: 2010
  11. INFLECTRA [Suspect]
     Active Substance: INFLIXIMAB-DYYB
     Dosage: 500 MG, CYCLIC (EVERY 6 WEEKS)
     Route: 042
     Dates: start: 20190110
  12. PANTOLOC /01263201/ [Concomitant]
     Active Substance: PANTOPRAZOLE SODIUM
     Dosage: UNK
     Route: 065
     Dates: start: 2010

REACTIONS (4)
  - Type 2 diabetes mellitus [Unknown]
  - Weight increased [Unknown]
  - Blood pressure fluctuation [Unknown]
  - Inappropriate schedule of product administration [Unknown]

NARRATIVE: CASE EVENT DATE: 20180326
